FAERS Safety Report 26176665 (Version 1)
Quarter: 2025Q4

REPORT INFORMATION
  Report Type: Spontaneous
  Country: JP (occurrence: JP)
  Receive Date: 20251218
  Receipt Date: 20251218
  Transmission Date: 20260119
  Serious: Yes (Other)
  Sender: JAZZ
  Company Number: JP-JAZZ PHARMACEUTICALS-2025-JP-014757

PATIENT
  Age: 72 Year
  Sex: Male
  Weight: 66.9 kg

DRUGS (8)
  1. VYXEOS [Suspect]
     Active Substance: CYTARABINE\DAUNORUBICIN
     Indication: Acute myeloid leukaemia
     Dosage: 100 UNITS/SQUARE METRE, DAILY
     Dates: start: 20241108, end: 20241108
  2. VYXEOS [Suspect]
     Active Substance: CYTARABINE\DAUNORUBICIN
     Dosage: 100 UNITS/SQUARE METRE, DAILY
     Dates: start: 20241110, end: 20241110
  3. VYXEOS [Suspect]
     Active Substance: CYTARABINE\DAUNORUBICIN
     Dosage: 100 UNITS/SQUARE METRE, DAILY
     Dates: start: 20241112, end: 20241112
  4. VYXEOS [Suspect]
     Active Substance: CYTARABINE\DAUNORUBICIN
     Dosage: 65 UNITS/SQUARE METRE, DAILY
     Dates: start: 20241225, end: 20241225
  5. VYXEOS [Suspect]
     Active Substance: CYTARABINE\DAUNORUBICIN
     Dosage: 65 UNITS/SQUARE METRE, DAILY
     Dates: start: 20241227, end: 20241227
  6. VYXEOS [Suspect]
     Active Substance: CYTARABINE\DAUNORUBICIN
     Dosage: 65 UNITS/SQUARE METRE, DAILY
     Dates: start: 20250201, end: 20250201
  7. VYXEOS [Suspect]
     Active Substance: CYTARABINE\DAUNORUBICIN
     Dosage: 65 UNITS/SQUARE METRE, DAILY
     Dates: start: 20250203, end: 20250203
  8. HUMAN RED BLOOD CELL [Concomitant]
     Active Substance: HUMAN RED BLOOD CELL
     Dosage: UNK

REACTIONS (14)
  - Acute myeloid leukaemia recurrent [Unknown]
  - Neutrophil count decreased [Recovered/Resolved]
  - Anaemia [Recovered/Resolved]
  - Platelet count decreased [Recovered/Resolved]
  - Platelet count decreased [Recovered/Resolved]
  - Neutrophil count decreased [Recovered/Resolved]
  - Platelet count decreased [Recovered/Resolved]
  - Diverticulitis [Recovering/Resolving]
  - Angular cheilitis [Recovered/Resolved]
  - Erythema [Recovered/Resolved]
  - Bacterial infection [Unknown]
  - Platelet count decreased [Unknown]
  - Pyrexia [Unknown]
  - Pyrexia [Unknown]

NARRATIVE: CASE EVENT DATE: 20241108
